FAERS Safety Report 7471994-5 (Version None)
Quarter: 2011Q2

REPORT INFORMATION
  Report Type: 
  Country: None (occurrence: None)
  Receive Date: 20110511
  Receipt Date: 20100907
  Transmission Date: 20111010
  Serious: No
  Sender: FDA-Public Use
  Company Number: A0880579A

PATIENT
  Sex: Female

DRUGS (1)
  1. TYKERB [Suspect]
     Dosage: 1250MG PER DAY
     Route: 065
     Dates: start: 20100831

REACTIONS (7)
  - ILL-DEFINED DISORDER [None]
  - PRURITUS [None]
  - IMPAIRED DRIVING ABILITY [None]
  - DIARRHOEA [None]
  - FATIGUE [None]
  - SWELLING FACE [None]
  - VERTIGO [None]
